FAERS Safety Report 7981940-3 (Version None)
Quarter: 2011Q4

REPORT INFORMATION
  Report Type: 
  Country: None (occurrence: None)
  Receive Date: 20111215
  Receipt Date: 20111214
  Transmission Date: 20120403
  Serious: Yes (Other)
  Sender: FDA-Public Use
  Company Number: US-BAYER-2011-120140

PATIENT
  Sex: Male

DRUGS (4)
  1. ALBUTEROL INHALER [Concomitant]
     Indication: NASOPHARYNGITIS
     Dosage: UNK
     Dates: start: 20111213
  2. ALBUTEROL INHALER [Concomitant]
     Indication: DYSPNOEA
  3. BETASERON [Suspect]
     Indication: MULTIPLE SCLEROSIS
     Dosage: 4 MIU, QOD
     Route: 058
     Dates: start: 20111205, end: 20111213
  4. ALBUTEROL INHALER [Concomitant]
     Indication: NASAL CONGESTION

REACTIONS (6)
  - HYPERSENSITIVITY [None]
  - PRURITUS [None]
  - PHARYNGEAL OEDEMA [None]
  - DYSPNOEA [None]
  - URTICARIA [None]
  - WHEEZING [None]
